FAERS Safety Report 8441682-7 (Version None)
Quarter: 2012Q2

REPORT INFORMATION
  Report Type: 
  Country: None (occurrence: None)
  Receive Date: 20120615
  Receipt Date: 20120606
  Transmission Date: 20120825
  Serious: Yes (Disabling)
  Sender: FDA-Public Use
  Company Number: FR-ASTRAZENECA-2012SE38526

PATIENT
  Age: 972 Month
  Sex: Male

DRUGS (1)
  1. ZOLADEX [Suspect]
     Indication: PROSTATE CANCER
     Route: 058
     Dates: start: 20070101

REACTIONS (6)
  - BLOOD PRESSURE INCREASED [None]
  - ARTHRALGIA [None]
  - OCULAR DISCOMFORT [None]
  - HYPOAESTHESIA [None]
  - FATIGUE [None]
  - MUSCULAR WEAKNESS [None]
